FAERS Safety Report 11053079 (Version 2)
Quarter: 2015Q2

REPORT INFORMATION
  Report Type: Spontaneous
  Country: US (occurrence: US)
  Receive Date: 20150421
  Receipt Date: 20150525
  Transmission Date: 20150821
  Serious: Yes (Other)
  Sender: FDA-Public Use
  Company Number: US-JNJFOC-20150316605

PATIENT
  Sex: Female
  Weight: 50.35 kg

DRUGS (3)
  1. SYNTHROID [Suspect]
     Active Substance: LEVOTHYROXINE SODIUM
     Indication: PRODUCT USED FOR UNKNOWN INDICATION
     Route: 065
     Dates: start: 201409, end: 2014
  2. RISPERDAL [Suspect]
     Active Substance: RISPERIDONE
     Indication: AGITATION
     Dosage: 1-2 TIMEE PER DAY
     Route: 048
     Dates: start: 2005
  3. RISPERIDONE. [Suspect]
     Active Substance: RISPERIDONE
     Indication: AGITATION
     Dosage: 1-2 TIMEE PER DAY
     Route: 048
     Dates: end: 201404

REACTIONS (16)
  - Neutrophil count increased [Not Recovered/Not Resolved]
  - Muscle strain [Unknown]
  - Diabetes mellitus [Not Recovered/Not Resolved]
  - Product use issue [Unknown]
  - Insomnia [Not Recovered/Not Resolved]
  - Dyspnoea [Recovered/Resolved]
  - Fatigue [Not Recovered/Not Resolved]
  - Platelet count decreased [Not Recovered/Not Resolved]
  - Sleep apnoea syndrome [Not Recovered/Not Resolved]
  - Weight increased [Not Recovered/Not Resolved]
  - Headache [Recovering/Resolving]
  - White blood cell count increased [Not Recovered/Not Resolved]
  - Chest discomfort [Recovered/Resolved]
  - Hidradenitis [Not Recovered/Not Resolved]
  - Blood triglycerides abnormal [Not Recovered/Not Resolved]
  - Weight increased [Not Recovered/Not Resolved]

NARRATIVE: CASE EVENT DATE: 2005
